FAERS Safety Report 23736868 (Version 3)
Quarter: 2024Q3

REPORT INFORMATION
  Report Type: Spontaneous
  Country: IL (occurrence: IL)
  Receive Date: 20240412
  Receipt Date: 20240909
  Transmission Date: 20241017
  Serious: Yes (Hospitalization, Other)
  Sender: RANBAXY
  Company Number: IL-SUN PHARMACEUTICAL INDUSTRIES LTD-2024R1-440659

PATIENT
  Age: 68 Year
  Sex: Male

DRUGS (2)
  1. FUROSEMIDE [Suspect]
     Active Substance: FUROSEMIDE
     Indication: Urine output
     Dosage: 80 MILLIGRAM
     Route: 042
  2. FUROSEMIDE [Suspect]
     Active Substance: FUROSEMIDE
     Dosage: 250 MICROGRAM, QD
     Route: 042

REACTIONS (2)
  - Therapy non-responder [Unknown]
  - Acute kidney injury [Recovering/Resolving]
